FAERS Safety Report 5366068-3 (Version None)
Quarter: 2007Q2

REPORT INFORMATION
  Report Type: 
  Country: None (occurrence: None)
  Receive Date: 20070620
  Receipt Date: 20070611
  Transmission Date: 20071010
  Serious: Yes (Hospitalization)
  Sender: FDA-Public Use
  Company Number: 2007US000865

PATIENT
  Age: 74 Year
  Sex: Female

DRUGS (7)
  1. VESICARE [Suspect]
     Indication: NOCTURIA
     Dosage: 5 MG UNK ORAL
     Route: 048
     Dates: start: 20060101, end: 20060101
  2. PLAVIX [Concomitant]
  3. ASPIRIN [Concomitant]
  4. SYNTHROID [Concomitant]
  5. DIOVAN [Concomitant]
  6. CLONIDINE [Concomitant]
  7. CELEBREX [Concomitant]

REACTIONS (5)
  - ASTHENIA [None]
  - DRUG INEFFECTIVE [None]
  - INTESTINAL ISCHAEMIA [None]
  - NOCTURIA [None]
  - URINARY INCONTINENCE [None]
